FAERS Safety Report 8982801 (Version 1)
Quarter: 2012Q4

REPORT INFORMATION
  Report Type: 
  Country: FI (occurrence: FI)
  Receive Date: 20121224
  Receipt Date: 20121224
  Transmission Date: 20130627
  Serious: Yes (Other)
  Sender: FDA-Public Use
  Company Number: FI-JNJFOC-20121206346

PATIENT
  Age: 34 Year
  Sex: Male

DRUGS (4)
  1. REMICADE [Suspect]
     Indication: POLYARTERITIS NODOSA
     Route: 042
     Dates: start: 20121129
  2. REMICADE [Suspect]
     Indication: POLYARTERITIS NODOSA
     Route: 042
     Dates: start: 200606
  3. CYCLOPHOSPHAMIDE [Concomitant]
     Route: 065
     Dates: end: 200610
  4. METHOTREXATE [Concomitant]
     Route: 065
     Dates: start: 200610

REACTIONS (5)
  - Progressive multifocal leukoencephalopathy [Not Recovered/Not Resolved]
  - Cognitive disorder [Unknown]
  - Meningitis [Unknown]
  - Infection [Unknown]
  - Rash [Unknown]
